FAERS Safety Report 5001962-4 (Version None)
Quarter: 2006Q2

REPORT INFORMATION
  Report Type: 
  Country: None (occurrence: None)
  Receive Date: 20060508
  Receipt Date: 20060508
  Transmission Date: 20061013
  Serious: Yes (Other)
  Sender: FDA-Public Use
  Company Number: None

PATIENT
  Age: 57 Year
  Sex: Female

DRUGS (3)
  1. TUBERSOL [Suspect]
     Dosage: INTRADERMAL (L) ARM
     Route: 023
     Dates: start: 20060502
  2. CLARITIN [Concomitant]
  3. TAGAMET [Concomitant]

REACTIONS (3)
  - ANAPHYLACTIC REACTION [None]
  - DYSPNOEA [None]
  - RASH [None]
